FAERS Safety Report 9218526 (Version 2)
Quarter: 2013Q2

REPORT INFORMATION
  Report Type: Spontaneous
  Country: US (occurrence: None)
  Receive Date: 20120827
  Receipt Date: 20121123
  Transmission Date: 20140414
  Serious: Yes (Other)
  Sender: FDA-Public Use
  Company Number: 350939

PATIENT
  Age: 64 Year
  Sex: Female
  Weight: 65.7 kg

DRUGS (9)
  1. VICTOZA [Suspect]
     Indication: TYPE 2 DIABETES MELLITUS
     Route: 058
     Dates: start: 20110614, end: 20110712
  2. LISINOPRIL (LISINOPRIL) [Concomitant]
  3. FLUOXETINE (FLUOXETINE) [Concomitant]
  4. LIPITOR (ATORVASTATIN CALCIUM) [Concomitant]
  5. MENEST /00073001/ (ESTROGENS CONJUGATED) [Concomitant]
  6. FLONASE (FLUTICASONE PROPIONATE) [Concomitant]
  7. NASACORT AQ(TRAIMCINOLONE ACETONIDE) [Concomitant]
  8. METFORMIN (METFORMIN) [Concomitant]
  9. ASPIRIN (ACETYLSALICYLIC ACID) [Concomitant]

REACTIONS (4)
  - Pancreatitis [None]
  - Diarrhoea [None]
  - Amylase increased [None]
  - Lipase increased [None]
